FAERS Safety Report 9841051 (Version 2)
Quarter: 2014Q1

REPORT INFORMATION
  Report Type: Report from Study
  Country: US (occurrence: US)
  Receive Date: 20140124
  Receipt Date: 20140129
  Transmission Date: 20141002
  Serious: Yes (Hospitalization)
  Sender: FDA-Public Use
  Company Number: US-PURDUE-USA-2014-0110510

PATIENT
  Age: 57 Year
  Sex: Male

DRUGS (3)
  1. OXY CR TAB [Suspect]
     Indication: INTERVERTEBRAL DISC DEGENERATION
     Dosage: UNK
     Route: 048
     Dates: start: 201203
  2. OXY CR TAB [Suspect]
     Indication: PAIN
     Dosage: 160 MG, Q12H
     Route: 048
     Dates: start: 20131106
  3. OXYCODONE HYDROCHLORIDE (SIMILAR TO NDA 22-272) [Concomitant]
     Indication: PAIN
     Dosage: 20 MG, DAILY
     Route: 048

REACTIONS (2)
  - Intestinal obstruction [Recovered/Resolved]
  - Constipation [Recovered/Resolved]
